FAERS Safety Report 24806243 (Version 1)
Quarter: 2025Q1

REPORT INFORMATION
  Report Type: Report from Study
  Country: CA (occurrence: CA)
  Receive Date: 20250103
  Receipt Date: 20250103
  Transmission Date: 20250409
  Serious: Yes (Hospitalization, Other)
  Sender: ABBVIE
  Company Number: CA-ABBVIE-6069706

PATIENT
  Age: 70 Year
  Sex: Female

DRUGS (2)
  1. RINVOQ [Suspect]
     Active Substance: UPADACITINIB
     Indication: Crohn^s disease
     Dosage: 45 MG ORALLY ONCE DAILY FOR 12 WEEKS THEN DECREASE TO 15 MG ONCE DAILY
     Route: 048
     Dates: start: 20241001, end: 202412
  2. RINVOQ [Suspect]
     Active Substance: UPADACITINIB
     Indication: Crohn^s disease
     Route: 048
     Dates: start: 202412, end: 202412

REACTIONS (6)
  - Intestinal obstruction [Unknown]
  - Gastrointestinal scarring [Unknown]
  - Crohn^s disease [Unknown]
  - Volvulus [Unknown]
  - Oral mucosal discolouration [Unknown]
  - Precancerous condition [Unknown]

NARRATIVE: CASE EVENT DATE: 20240101
